FAERS Safety Report 15157943 (Version 1)
Quarter: 2018Q3

REPORT INFORMATION
  Report Type: Spontaneous
  Country: US (occurrence: US)
  Receive Date: 20180620
  Receipt Date: 20180620
  Transmission Date: 20181010
  Serious: Yes (Disabling, Other)
  Sender: FDA-Public Use
  Company Number: None

PATIENT
  Age: 43 Year
  Sex: Male
  Weight: 110.25 kg

DRUGS (5)
  1. FLUTICASONE PROPIONATE NASAL SPRAY USP 50MCG PER SPRAY 120 METERED SPR [Suspect]
     Active Substance: FLUTICASONE PROPIONATE
     Indication: MULTIPLE ALLERGIES
     Dosage: ?          QUANTITY:2 SPRAY(S);?
     Route: 055
  2. XYZAL [Concomitant]
     Active Substance: LEVOCETIRIZINE DIHYDROCHLORIDE
  3. ALPROLAZAM [Concomitant]
  4. ZOLOFT [Concomitant]
     Active Substance: SERTRALINE HYDROCHLORIDE
  5. METFORMIN [Concomitant]
     Active Substance: METFORMIN HYDROCHLORIDE

REACTIONS (6)
  - Nasal polyps [None]
  - Pain [None]
  - Nasal inflammation [None]
  - Device issue [None]
  - Product contamination physical [None]
  - Product quality issue [None]

NARRATIVE: CASE EVENT DATE: 20180225
